FAERS Safety Report 6425732-5 (Version None)
Quarter: 2009Q4

REPORT INFORMATION
  Report Type: 
  Country: None (occurrence: None)
  Receive Date: 20091103
  Receipt Date: 20091023
  Transmission Date: 20100525
  Serious: Yes (Hospitalization, Other)
  Sender: FDA-Public Use
  Company Number: PHEH2009US13545

PATIENT
  Sex: Male

DRUGS (2)
  1. EXJADE [Suspect]
     Indication: THROMBOCYTOPENIA
     Dosage: 500 MG, TID
     Route: 048
  2. EXJADE [Suspect]
     Indication: MYELODYSPLASTIC SYNDROME

REACTIONS (5)
  - ASTHENIA [None]
  - DISEASE PROGRESSION [None]
  - FACE INJURY [None]
  - FALL [None]
  - MYELODYSPLASTIC SYNDROME [None]
